FAERS Safety Report 10284728 (Version 1)
Quarter: 2014Q3

REPORT INFORMATION
  Report Type: Spontaneous
  Country: US (occurrence: None)
  Receive Date: 20140703
  Receipt Date: 20140703
  Transmission Date: 20150326
  Serious: No
  Sender: FDA-Public Use
  Company Number: None

PATIENT
  Age: 84 Year
  Sex: Female

DRUGS (2)
  1. CAPECITABINE 500 MG TEVA PHARMACEUTICALS USA INC [Suspect]
     Active Substance: CAPECITABINE
     Indication: COLON CANCER
     Route: 048
     Dates: start: 20140604
  2. XELODA [Suspect]
     Active Substance: CAPECITABINE
     Dates: start: 20140226, end: 20140603

REACTIONS (1)
  - Thrombosis [None]

NARRATIVE: CASE EVENT DATE: 20140702
